FAERS Safety Report 13752404 (Version 1)
Quarter: 2017Q3

REPORT INFORMATION
  Report Type: Spontaneous
  Country: US (occurrence: US)
  Receive Date: 20170713
  Receipt Date: 20170713
  Transmission Date: 20171127
  Serious: No
  Sender: FDA-Public Use
  Company Number: US-JAZZ-2017-US-007093

PATIENT
  Age: 26 Year
  Sex: Female

DRUGS (4)
  1. XYREM [Suspect]
     Active Substance: SODIUM OXYBATE
     Indication: NARCOLEPSY
     Dosage: 2G, BID
     Route: 048
     Dates: start: 20170527, end: 2017
  2. XYREM [Suspect]
     Active Substance: SODIUM OXYBATE
     Indication: CATAPLEXY
     Dosage: 2.25 G, BID
     Route: 048
     Dates: start: 2017, end: 201705
  3. NORETHINDRONE                      /00044901/ [Concomitant]
     Active Substance: NORETHINDRONE
  4. RAPAFLO [Concomitant]
     Active Substance: SILODOSIN

REACTIONS (9)
  - Poor quality sleep [Recovered/Resolved]
  - Fatigue [Unknown]
  - Dizziness [Not Recovered/Not Resolved]
  - Migraine [Unknown]
  - Hunger [Unknown]
  - Cognitive disorder [Unknown]
  - Wrong technique in product usage process [Unknown]
  - Nausea [Not Recovered/Not Resolved]
  - Disorientation [Not Recovered/Not Resolved]

NARRATIVE: CASE EVENT DATE: 201705
